FAERS Safety Report 18823968 (Version 1)
Quarter: 2021Q1

REPORT INFORMATION
  Report Type: Spontaneous
  Country: US (occurrence: US)
  Receive Date: 20210201
  Receipt Date: 20210201
  Transmission Date: 20210419
  Serious: No
  Sender: FDA-Public Use
  Company Number: US-ABBVIE-20K-163-3262597-00

PATIENT
  Age: 55 Year
  Sex: Male
  Weight: 93.07 kg

DRUGS (1)
  1. HUMIRA [Suspect]
     Active Substance: ADALIMUMAB
     Indication: PSORIATIC ARTHROPATHY
     Dosage: ONCE EVERY TWO TO THREE MONTHS
     Route: 058
     Dates: start: 2003

REACTIONS (5)
  - Psoriatic arthropathy [Unknown]
  - Incorrect dose administered [Unknown]
  - Injection site pain [Unknown]
  - Device issue [Unknown]
  - Injection site erythema [Unknown]

NARRATIVE: CASE EVENT DATE: 20191220
